FAERS Safety Report 6396140-0 (Version None)
Quarter: 2009Q4

REPORT INFORMATION
  Report Type: 
  Country: None (occurrence: None)
  Receive Date: 20091009
  Receipt Date: 20090930
  Transmission Date: 20100525
  Serious: Yes (Hospitalization, Other)
  Sender: FDA-Public Use
  Company Number: US-MERCK-0705USA05341

PATIENT
  Age: 64 Year
  Sex: Female
  Weight: 73 kg

DRUGS (8)
  1. FOSAMAX [Suspect]
     Indication: OSTEOPOROSIS
     Route: 048
     Dates: start: 20020901, end: 20060101
  2. VERAPAMIL [Concomitant]
     Indication: HEART RATE IRREGULAR
     Route: 065
     Dates: start: 20000101, end: 20040101
  3. DEXAPHEN SA [Concomitant]
     Indication: HYPERSENSITIVITY
     Route: 065
     Dates: start: 20000101, end: 20050101
  4. LEVOTHROID [Concomitant]
     Indication: HYPOTHYROIDISM
     Route: 065
     Dates: start: 19980101
  5. ALLEGRA [Concomitant]
     Indication: HYPERSENSITIVITY
     Route: 065
     Dates: start: 20000101
  6. RANITIDINE [Concomitant]
     Indication: GASTROOESOPHAGEAL REFLUX DISEASE
     Route: 065
     Dates: start: 20010101
  7. PREVACID [Concomitant]
     Indication: GASTROOESOPHAGEAL REFLUX DISEASE
     Route: 065
     Dates: start: 20010101
  8. IBUPROFEN [Concomitant]
     Indication: OSTEOARTHRITIS
     Route: 065
     Dates: start: 20000101, end: 20040101

REACTIONS (26)
  - ACUTE SINUSITIS [None]
  - ADVERSE DRUG REACTION [None]
  - APHTHOUS STOMATITIS [None]
  - BONE FRAGMENTATION [None]
  - CELLULITIS [None]
  - DYSPNOEA [None]
  - EXOSTOSIS [None]
  - FISTULA [None]
  - GINGIVAL DISORDER [None]
  - GRANULOMA [None]
  - IMPAIRED HEALING [None]
  - LYMPHADENOPATHY [None]
  - MOUTH ULCERATION [None]
  - NECK PAIN [None]
  - ORAL INFECTION [None]
  - ORAL LEUKOEDEMA [None]
  - ORAL TORUS [None]
  - OSTEOMYELITIS [None]
  - OSTEONECROSIS [None]
  - PRIMARY SEQUESTRUM [None]
  - PRURITUS [None]
  - RESPIRATORY TRACT INFECTION [None]
  - ROAD TRAFFIC ACCIDENT [None]
  - TOOTH LOSS [None]
  - TOOTHACHE [None]
  - TYPE 2 DIABETES MELLITUS [None]
